FAERS Safety Report 20359187 (Version 1)
Quarter: 2022Q1

REPORT INFORMATION
  Report Type: Spontaneous
  Country: US (occurrence: US)
  Receive Date: 20220121
  Receipt Date: 20220121
  Transmission Date: 20220423
  Serious: No
  Sender: FDA-Public Use
  Company Number: US-AMGEN-USASP2022008496

PATIENT
  Sex: Female

DRUGS (7)
  1. OTEZLA [Suspect]
     Active Substance: APREMILAST
     Indication: Psoriasis
     Dosage: 30 MILLIGRAM, BID
     Route: 048
     Dates: start: 20171013
  2. CALCIUM ACETATE [Concomitant]
     Active Substance: CALCIUM ACETATE
  3. VIT C LONG [Concomitant]
     Dosage: 60 MILLIGRAM
  4. NARCAN [Concomitant]
     Active Substance: NALOXONE HYDROCHLORIDE
  5. PREMARIN [Concomitant]
     Active Substance: ESTROGENS, CONJUGATED
     Dosage: 1.25 MILLIGRAM
  6. RED YEAST RICE PLUS [Concomitant]
  7. ZOCOR [Concomitant]
     Active Substance: SIMVASTATIN
     Dosage: 80 MILLIGRAM

REACTIONS (1)
  - Psoriasis [Not Recovered/Not Resolved]
